FAERS Safety Report 9358648 (Version 1)
Quarter: 2013Q2

REPORT INFORMATION
  Report Type: Spontaneous
  Country: US (occurrence: US)
  Receive Date: 20130620
  Receipt Date: 20130620
  Transmission Date: 20140414
  Serious: Yes (Death)
  Sender: FDA-Public Use
  Company Number: US-GLAXOSMITHKLINE-A1027690A

PATIENT
  Age: 64 Year
  Sex: Female

DRUGS (5)
  1. ARIXTRA [Suspect]
     Indication: DEEP VEIN THROMBOSIS
     Dosage: 7.5MG PER DAY
     Route: 058
     Dates: start: 201206, end: 20130428
  2. LISINOPRIL [Concomitant]
  3. KEPPRA [Concomitant]
  4. AMBIEN [Concomitant]
  5. DEXAMETHASONE [Concomitant]

REACTIONS (1)
  - Death [Fatal]
